FAERS Safety Report 21299014 (Version 1)
Quarter: 2022Q3

REPORT INFORMATION
  Report Type: Spontaneous
  Country: US (occurrence: None)
  Receive Date: 20220905
  Receipt Date: 20220905
  Transmission Date: 20221027
  Serious: Yes (Other)
  Sender: FDA-Public Use
  Company Number: None

PATIENT
  Age: 38 Year
  Sex: Female
  Weight: 73.8 kg

DRUGS (2)
  1. DEXTROAMPHET SACCHARAT, AMPHET ASPARTATE, DEXTROAMPHET SULFATE AND AMP [Suspect]
     Active Substance: AMPHETAMINE ASPARTATE\AMPHETAMINE SULFATE\DEXTROAMPHETAMINE SACCHARATE\DEXTROAMPHETAMINE SULFATE
     Indication: Attention deficit hyperactivity disorder
     Dosage: OTHER QUANTITY : 1 TABLET(S);?FREQUENCY : TWICE A DAY;?
     Route: 048
     Dates: start: 20220804
  2. SKYLA [Concomitant]
     Active Substance: LEVONORGESTREL

REACTIONS (9)
  - Drug ineffective [None]
  - Product physical issue [None]
  - Product taste abnormal [None]
  - Rash erythematous [None]
  - Rash [None]
  - Rash pruritic [None]
  - Tinnitus [None]
  - Neuralgia [None]
  - Product quality issue [None]

NARRATIVE: CASE EVENT DATE: 20220804
